FAERS Safety Report 8300291-0 (Version None)
Quarter: 2012Q2

REPORT INFORMATION
  Report Type: 
  Country: None (occurrence: None)
  Receive Date: 20120420
  Receipt Date: 20120418
  Transmission Date: 20120825
  Serious: Yes (Other)
  Sender: FDA-Public Use
  Company Number: US-PFIZER INC-2012071378

PATIENT
  Sex: Female

DRUGS (2)
  1. MULTI-VITAMINS [Suspect]
     Dosage: UNK
     Route: 048
  2. DILANTIN [Suspect]
     Indication: EPILEPSY
     Dosage: UNK

REACTIONS (5)
  - LOWER LIMB FRACTURE [None]
  - CHOKING [None]
  - NAUSEA [None]
  - MULTIPLE FRACTURES [None]
  - NEUROPATHY PERIPHERAL [None]
